FAERS Safety Report 11552316 (Version 1)
Quarter: 2015Q3

REPORT INFORMATION
  Report Type: Spontaneous
  Country: US (occurrence: None)
  Receive Date: 20150924
  Receipt Date: 20150924
  Transmission Date: 20151125
  Serious: Yes (Disabling)
  Sender: FDA-Public Use
  Company Number: None

PATIENT
  Age: 61 Year
  Sex: Female
  Weight: 68.04 kg

DRUGS (1)
  1. LEVOFLOXACIN. [Suspect]
     Active Substance: LEVOFLOXACIN
     Indication: BACTERIAL INFECTION
     Dosage: 10 PILLS 1 PILL A DAY BY MOUTH
     Route: 048
     Dates: start: 20150602, end: 20150612

REACTIONS (3)
  - Musculoskeletal pain [None]
  - Joint crepitation [None]
  - Contusion [None]

NARRATIVE: CASE EVENT DATE: 20150613
